FAERS Safety Report 7860218-2 (Version None)
Quarter: 2011Q4

REPORT INFORMATION
  Report Type: 
  Country: None (occurrence: None)
  Receive Date: 20111027
  Receipt Date: 20111018
  Transmission Date: 20120403
  Serious: Yes (Death, Hospitalization, Other)
  Sender: FDA-Public Use
  Company Number: US-BAYER-2011-021249

PATIENT
  Age: 16 Year
  Sex: Female
  Weight: 100 kg

DRUGS (3)
  1. IBUPROFEN (ADVIL) [Concomitant]
     Indication: HEADACHE
  2. YASMIN [Suspect]
     Indication: MENSTRUATION IRREGULAR
     Dosage: UNK
     Dates: start: 20030829, end: 20031121
  3. TYLENOL PM [Concomitant]
     Indication: HEADACHE
     Dosage: UNK
     Dates: start: 20031225

REACTIONS (5)
  - CEREBRAL HAEMORRHAGE [None]
  - CEREBRAL CIRCULATORY FAILURE [None]
  - SUPERIOR SAGITTAL SINUS THROMBOSIS [None]
  - NEUROLOGICAL DECOMPENSATION [None]
  - BRAIN OEDEMA [None]
